FAERS Safety Report 6644025-4 (Version None)
Quarter: 2010Q1

REPORT INFORMATION
  Report Type: 
  Country: None (occurrence: None)
  Receive Date: 20100308
  Receipt Date: 20100225
  Transmission Date: 20100710
  Serious: Yes (Other)
  Sender: FDA-Public Use
  Company Number: AECAN201000064

PATIENT
  Age: 86 Year
  Sex: Female
  Weight: 48 kg

DRUGS (6)
  1. IGIV (MANUFACTURER UNKNOWN) (IMMUNE GLOBULIN IV (HUMAN), CAPRYLATE/CHR [Suspect]
     Indication: HYPOGAMMAGLOBULINAEMIA
     Dosage: IV
     Route: 042
     Dates: start: 20090601, end: 20090601
  2. GAMUNEX -  (IMMUNE GLOBULIN IV (HUMAN) (10 PCT) [Suspect]
     Indication: HYPOGAMMAGLOBULINAEMIA
     Dosage: 6 GM; 1X; IV
     Route: 042
     Dates: start: 20040101
  3. IGIVNEX (IMMUNE GLOBULIN IV (HUMAN) (10 PCT) [Suspect]
     Indication: HYPOGAMMAGLOBULINAEMIA
     Dosage: IV
     Route: 042
     Dates: end: 20091124
  4. CALCIUM [Concomitant]
  5. BISPHOSPHONATES [Concomitant]
  6. VITAMIN ID NOS [Concomitant]

REACTIONS (6)
  - BACK PAIN [None]
  - CHEST PAIN [None]
  - DRUG HYPERSENSITIVITY [None]
  - INFUSION RELATED REACTION [None]
  - PRESYNCOPE [None]
  - RESPIRATORY RATE INCREASED [None]
